FAERS Safety Report 5123703-2 (Version None)
Quarter: 2006Q4

REPORT INFORMATION
  Report Type: 
  Country: None (occurrence: None)
  Receive Date: 20061010
  Receipt Date: 20060830
  Transmission Date: 20070319
  Serious: Yes (Hospitalization)
  Sender: FDA-Public Use
  Company Number: HQWYE154130AUG06

PATIENT
  Sex: Female

DRUGS (9)
  1. ENBREL [Suspect]
     Indication: RHEUMATOID ARTHRITIS
     Route: 058
     Dates: start: 20051012, end: 20060802
  2. ACTONEL [Concomitant]
     Route: 048
  3. PREDONINE [Concomitant]
     Route: 048
  4. NORVASC [Concomitant]
     Route: 048
  5. PLETAL [Concomitant]
     Route: 048
  6. MEVALOTIN [Concomitant]
     Route: 048
  7. LANSOPRAZOLE [Concomitant]
     Route: 048
  8. INSULIN [Concomitant]
     Dosage: UNSPECIFIED
  9. INSULIN HUMAN [Concomitant]
     Dosage: UNSPECIFIED

REACTIONS (8)
  - CENTRAL NERVOUS SYSTEM LESION [None]
  - DELIRIUM [None]
  - DEPRESSED LEVEL OF CONSCIOUSNESS [None]
  - LEUKOARAIOSIS [None]
  - NUCLEAR MAGNETIC RESONANCE IMAGING BRAIN ABNORMAL [None]
  - OPTIC NERVE DISORDER [None]
  - VISUAL ACUITY REDUCED [None]
  - VISUAL FIELD DEFECT [None]
